FAERS Safety Report 17360116 (Version 1)
Quarter: 2020Q1

REPORT INFORMATION
  Report Type: Spontaneous
  Country: CN (occurrence: CN)
  Receive Date: 20200203
  Receipt Date: 20200203
  Transmission Date: 20200409
  Serious: Yes (Other)
  Sender: FDA-Public Use
  Company Number: CN-BAYER-2020-018493

PATIENT
  Age: 76 Year
  Sex: Male
  Weight: 70 kg

DRUGS (2)
  1. BAYASPIRIN 100 MG [Suspect]
     Active Substance: ASPIRIN
     Indication: ANTIPLATELET THERAPY
     Dosage: 300 MG, QD
     Route: 048
     Dates: start: 20191224, end: 20191224
  2. ARGATROBAN. [Concomitant]
     Active Substance: ARGATROBAN

REACTIONS (3)
  - Upper gastrointestinal haemorrhage [Recovering/Resolving]
  - Faeces discoloured [Recovering/Resolving]
  - Sputum discoloured [Recovering/Resolving]

NARRATIVE: CASE EVENT DATE: 20191228
